FAERS Safety Report 13515656 (Version 1)
Quarter: 2017Q2

REPORT INFORMATION
  Report Type: Spontaneous
  Country: US (occurrence: US)
  Receive Date: 20170504
  Receipt Date: 20170504
  Transmission Date: 20170830
  Serious: Yes (Other)
  Sender: FDA-Public Use
  Company Number: US-LUNDBECK-DKLU2030220

PATIENT
  Age: 58 Year
  Sex: Male

DRUGS (1)
  1. NORTHERA [Suspect]
     Active Substance: DROXIDOPA
     Indication: PRODUCT USED FOR UNKNOWN INDICATION
     Dosage: SCHEDULE C-FIXED DOSE
     Route: 065
     Dates: start: 20170206

REACTIONS (6)
  - Loss of consciousness [Unknown]
  - Dizziness [Unknown]
  - Sluggishness [Unknown]
  - Feeling abnormal [Unknown]
  - Blood pressure decreased [Unknown]
  - Therapeutic response decreased [Unknown]

NARRATIVE: CASE EVENT DATE: 20170425
